FAERS Safety Report 5407512-2 (Version None)
Quarter: 2007Q3

REPORT INFORMATION
  Report Type: 
  Country: None (occurrence: None)
  Receive Date: 20070713
  Receipt Date: 20061206
  Transmission Date: 20080115
  Serious: No
  Sender: FDA-Public Use
  Company Number: US-JNJFOC-20060105354

PATIENT
  Age: 41 Year
  Sex: Female

DRUGS (1)
  1. ORTHO EVRA [Suspect]
     Indication: DRUG USE FOR UNKNOWN INDICATION
     Dosage: 1 DOSE (S), 3 IN 4 WEEK, TRANSDERMAL
     Route: 062
     Dates: start: 20050101, end: 20050101

REACTIONS (5)
  - ANGINA PECTORIS [None]
  - HEADACHE [None]
  - MALAISE [None]
  - NAUSEA [None]
  - VAGINAL HAEMORRHAGE [None]
